FAERS Safety Report 17196789 (Version 18)
Quarter: 2020Q3

REPORT INFORMATION
  Report Type: Report from Study
  Country: FR (occurrence: FR)
  Receive Date: 20191224
  Receipt Date: 20200925
  Transmission Date: 20201102
  Serious: Yes (Death, Life-Threatening, Hospitalization, Other)
  Sender: FDA-Public Use
  Company Number: FR-PFIZER INC-2019328344

PATIENT
  Age: 80 Year
  Sex: Male
  Weight: 54 kg

DRUGS (25)
  1. TIMOFEROL [Concomitant]
     Active Substance: ASCORBIC ACID\FERROUS SULFATE
     Indication: ANAEMIA
     Dosage: 100 MILLIGRAM, DAILY DOSE
     Route: 048
     Dates: start: 201903
  2. ALLOPURINOL. [Concomitant]
     Active Substance: ALLOPURINOL
     Indication: GOUT
     Dosage: 300 MILLIGRAM, QD
     Route: 048
     Dates: start: 20180711
  3. ALLOPURINOL. [Concomitant]
     Active Substance: ALLOPURINOL
     Dosage: 50 MILLIGRAM, DAILY DOSE
     Route: 048
     Dates: start: 20180712
  4. CEFTRIAXONE. [Suspect]
     Active Substance: CEFTRIAXONE
     Indication: INFECTION
     Dosage: 1000 MILLIGRAM, QD
     Dates: start: 20190325, end: 20190325
  5. PANTOPRAZOLE [PANTOPRAZOLE SODIUM SESQUIHYDRATE] [Concomitant]
     Active Substance: PANTOPRAZOLE SODIUM
     Indication: PROPHYLAXIS AGAINST GASTROINTESTINAL ULCER
     Dosage: 20 MILLIGRAM, DAILY DOSE
     Route: 048
  6. KARDEGIC [Suspect]
     Active Substance: ASPIRIN DL-LYSINE
     Indication: CHRONIC MYELOID LEUKAEMIA
     Dosage: 75 MILLIGRAM, DAILY DOSE
     Route: 048
     Dates: start: 20181005
  7. PREVISCAN [FLUINDIONE] [Suspect]
     Active Substance: FLUINDIONE
     Indication: BENIGN PROSTATIC HYPERPLASIA
     Dosage: 20 MILLIGRAM, DAILY DOSE
     Route: 048
     Dates: start: 20180601, end: 20181123
  8. TIENAM [Suspect]
     Active Substance: CILASTATIN SODIUM\IMIPENEM
     Indication: URINARY TRACT INFLAMMATION
     Dosage: UNK
     Route: 065
     Dates: start: 20181218
  9. CIFLOX [CIPROFLOXACIN] [Concomitant]
     Active Substance: CIPROFLOXACIN
     Indication: URINARY TRACT INFECTION
     Dosage: 250 MILLIGRAM, DAILY DOSE
     Route: 048
     Dates: start: 20190317
  10. EFFEXOR [Concomitant]
     Active Substance: VENLAFAXINE HYDROCHLORIDE
     Indication: DEPRESSION
     Dosage: 37.5 MILLIGRAM, DAILY DOSE
     Route: 048
     Dates: start: 201903
  11. CORDARONE [Concomitant]
     Active Substance: AMIODARONE HYDROCHLORIDE
     Indication: ATRIAL FIBRILLATION
     Dosage: 200 MILLIGRAM, DAILY DOSE
     Route: 048
     Dates: start: 20180530
  12. ROCEPHINE [Suspect]
     Active Substance: CEFTRIAXONE SODIUM
     Indication: SEPSIS
     Dosage: UNK
     Route: 048
     Dates: start: 20181202
  13. ATORVASTATINE [ATORVASTATIN] [Concomitant]
     Active Substance: ATORVASTATIN
     Indication: ISCHAEMIC CARDIOMYOPATHY
     Dosage: 40 MILLIGRAM, DAILY DOSE
     Route: 048
  14. EZETROL [Concomitant]
     Active Substance: EZETIMIBE
     Indication: ISCHAEMIC CARDIOMYOPATHY
     Dosage: 10 MILLIGRAM, DAILY DOSE
     Route: 048
  15. SEROPLEX [Concomitant]
     Active Substance: ESCITALOPRAM OXALATE
     Indication: DEPRESSION
     Dosage: 20 MILLIGRAM, DAILY DOSE
     Route: 048
     Dates: start: 20190214
  16. XATRAL [ALFUZOSIN HYDROCHLORIDE] [Concomitant]
     Active Substance: ALFUZOSIN
     Indication: ANXIETY
     Dosage: 10 MILLIGRAM, DAILY DOSE
     Route: 048
  17. AMLODIPINE [Concomitant]
     Active Substance: AMLODIPINE BESYLATE
     Indication: HYPERTENSION
     Dosage: 5 MILLIGRAM,DAILY DOSE
     Route: 048
  18. APIXABAN [Suspect]
     Active Substance: APIXABAN
     Dosage: UNK
     Route: 065
  19. MERONEM [Suspect]
     Active Substance: MEROPENEM
     Indication: INFLAMMATION
     Dosage: UNK
     Route: 048
     Dates: start: 20190117, end: 20190207
  20. BISOCE [Concomitant]
     Active Substance: BISOPROLOL
     Indication: ISCHAEMIC CARDIOMYOPATHY
     Dosage: 2.5 MILLIGRAM, DAILY DOSE
     Route: 048
     Dates: start: 20180530
  21. FUROSEMIDE. [Concomitant]
     Active Substance: FUROSEMIDE
     Indication: RENAL FAILURE
     Dosage: 40 MILLIGRAM, DAILY DOSE
     Route: 048
     Dates: start: 20181128
  22. WARFARIN SODIUM. [Suspect]
     Active Substance: WARFARIN SODIUM
     Indication: ATRIAL FIBRILLATION
     Dosage: 3 MILLIGRAM, QD
     Route: 048
     Dates: start: 20190114, end: 20190326
  23. LOVENOX [LEVOFLOXACIN] [Suspect]
     Active Substance: LEVOFLOXACIN
     Dosage: 40 MILLIGRAM, DAILY
     Route: 042
     Dates: start: 20180523, end: 20180527
  24. SYMBICORT [Concomitant]
     Active Substance: BUDESONIDE\FORMOTEROL FUMARATE DIHYDRATE
     Indication: ASTHMA
     Dosage: 200 OTHER, DAILY DOSE
     Route: 050
     Dates: end: 201903
  25. PERMIXON [Concomitant]
     Active Substance: HERBALS\SAW PALMETTO
     Indication: BENIGN PROSTATIC HYPERPLASIA
     Dosage: 160 MG, 1X/DAY
     Route: 048

REACTIONS (3)
  - Normocytic anaemia [Recovered/Resolved]
  - Urosepsis [Recovered/Resolved]
  - General physical health deterioration [Fatal]

NARRATIVE: CASE EVENT DATE: 20190325
